FAERS Safety Report 5809926-5 (Version None)
Quarter: 2008Q3

REPORT INFORMATION
  Report Type: 
  Country: None (occurrence: None)
  Receive Date: 20080707
  Receipt Date: 20080625
  Transmission Date: 20090109
  Serious: Yes (Other)
  Sender: FDA-Public Use
  Company Number: GAM-113-08-PT

PATIENT
  Age: 49 Year
  Sex: Female

DRUGS (1)
  1. OCTAGAM 5% (HUMAN NORMAL IMMUNOGLOBULIN FOR INTRAVENOUS ADMINISTRATION [Suspect]
     Indication: MYASTHENIA GRAVIS
     Dosage: 40 G, I.V.
     Route: 042
     Dates: start: 20080513

REACTIONS (1)
  - SKIN LESION [None]
